FAERS Safety Report 15958631 (Version 2)
Quarter: 2019Q3

REPORT INFORMATION
  Report Type: Spontaneous
  Country: US (occurrence: US)
  Receive Date: 20190213
  Receipt Date: 20190809
  Transmission Date: 20191004
  Serious: No
  Sender: FDA-Public Use
  Company Number: US-PURDUE-USA-2019-0145726

PATIENT
  Sex: Male

DRUGS (2)
  1. BUTRANS [Suspect]
     Active Substance: BUPRENORPHINE
     Indication: PAIN
     Dosage: 15 MCG/HR, WEEKLY
     Route: 062
  2. LEVOXINE [Suspect]
     Active Substance: LEVOTHYROXINE SODIUM
     Indication: HYPOTHYROIDISM
     Dosage: UNK
     Route: 065

REACTIONS (7)
  - Application site odour [Unknown]
  - Therapeutic product effect decreased [Not Recovered/Not Resolved]
  - Application site vesicles [Unknown]
  - Therapeutic product effect increased [Unknown]
  - Application site pain [Unknown]
  - Application site burn [Unknown]
  - Application site pruritus [Unknown]

NARRATIVE: CASE EVENT DATE: 201811
